FAERS Safety Report 5595234-7 (Version None)
Quarter: 2008Q1

REPORT INFORMATION
  Report Type: 
  Country: None (occurrence: None)
  Receive Date: 20080117
  Receipt Date: 20080108
  Transmission Date: 20080703
  Serious: Yes (Other)
  Sender: FDA-Public Use
  Company Number: JP-PFIZER INC-2007049687

PATIENT
  Sex: Male
  Weight: 49 kg

DRUGS (6)
  1. ZOLOFT [Suspect]
     Indication: DEPRESSION
     Dosage: DAILY DOSE:50MG
     Route: 048
  2. PAXIL [Concomitant]
     Indication: DEPRESSION
     Dosage: DAILY DOSE:10MG
     Route: 048
  3. ROHYPNOL [Concomitant]
     Route: 048
  4. GASTER [Concomitant]
     Route: 048
  5. GASMOTIN [Concomitant]
     Route: 048
  6. MAGNESIUM OXIDE [Concomitant]
     Route: 048

REACTIONS (3)
  - ANXIETY [None]
  - DELUSION [None]
  - PERSECUTORY DELUSION [None]
